FAERS Safety Report 4753131-0 (Version None)
Quarter: 2005Q3

REPORT INFORMATION
  Report Type: 
  Country: None (occurrence: None)
  Receive Date: 20050826
  Receipt Date: 20050816
  Transmission Date: 20060218
  Serious: Yes (Hospitalization)
  Sender: FDA-Public Use
  Company Number: CH-MERCK-0508CHE00017

PATIENT
  Age: 69 Year
  Sex: Female
  Weight: 90 kg

DRUGS (4)
  1. ZETIA [Suspect]
     Indication: HYPERCHOLESTEROLAEMIA
     Route: 048
     Dates: start: 20050510, end: 20050101
  2. ZETIA [Suspect]
     Route: 048
     Dates: start: 20050101
  3. PRAVASTATIN SODIUM [Concomitant]
     Indication: HYPERCHOLESTEROLAEMIA
     Route: 048
     Dates: start: 20050510, end: 20050101
  4. PRAVASTATIN SODIUM [Concomitant]
     Route: 048
     Dates: start: 20050101

REACTIONS (1)
  - BACK DISORDER [None]
